FAERS Safety Report 10252646 (Version 2)
Quarter: 2014Q4

REPORT INFORMATION
  Report Type: Spontaneous
  Country: DK (occurrence: CH)
  Receive Date: 20140623
  Receipt Date: 20141027
  Transmission Date: 20150528
  Serious: Yes (Congenital Anomaly, Other)
  Sender: FDA-Public Use
  Company Number: CH-FRI-1000068377

PATIENT
  Age: 0 Year
  Sex: Female
  Weight: 2.3 kg

DRUGS (8)
  1. STILNOX CR [Suspect]
     Active Substance: ZOLPIDEM TARTRATE
     Indication: INSOMNIA
     Dosage: 12.5 MG
     Route: 064
     Dates: start: 20140423
  2. VALDOXAN [Suspect]
     Active Substance: AGOMELATINE
     Indication: DEPRESSION
     Dosage: 25 MG
     Route: 064
     Dates: start: 20131001, end: 20131016
  3. UTROGESTAN [Concomitant]
     Active Substance: PROGESTERONE
     Route: 064
  4. ESCITALOPRAM [Suspect]
     Active Substance: ESCITALOPRAM OXALATE
     Dosage: 10 MG, DECREASED TO 10 MG AT END OF PREGNANCY
     Route: 064
  5. FLURAZEPAM [Suspect]
     Active Substance: FLURAZEPAM\FLURAZEPAM HYDROCHLORIDE
     Indication: INSOMNIA
     Dosage: 15-30 MG DAILY
     Route: 064
     Dates: start: 20130626, end: 20140423
  6. FLUOXETINE [Suspect]
     Active Substance: FLUOXETINE\FLUOXETINE HYDROCHLORIDE
     Indication: DEPRESSION
     Route: 064
     Dates: start: 2013, end: 20131001
  7. ESCITALOPRAM [Suspect]
     Active Substance: ESCITALOPRAM OXALATE
     Indication: DEPRESSION
     Dosage: 20 MG
     Route: 064
     Dates: start: 20131016
  8. ASPIRIN. [Concomitant]
     Active Substance: ASPIRIN
     Dosage: 100 MG
     Route: 064

REACTIONS (5)
  - Foetal exposure during pregnancy [Recovered/Resolved]
  - Syndactyly [Not Recovered/Not Resolved]
  - Premature baby [Recovered/Resolved]
  - Congenital foot malformation [Not Recovered/Not Resolved]
  - Congenital hand malformation [Not Recovered/Not Resolved]

NARRATIVE: CASE EVENT DATE: 2013
